FAERS Safety Report 26211009 (Version 1)
Quarter: 2025Q4

REPORT INFORMATION
  Report Type: Spontaneous
  Country: CA (occurrence: CA)
  Receive Date: 20251230
  Receipt Date: 20251230
  Transmission Date: 20260117
  Serious: Yes (Hospitalization, Other)
  Sender: CELLTRION
  Company Number: CA-CELLTRION INC.-2025CA046366

PATIENT

DRUGS (28)
  1. OMALIZUMAB [Suspect]
     Active Substance: OMALIZUMAB
     Indication: Asthma
     Dosage: 225 MG, 2 EVERY 1 WEEK
     Route: 058
  2. OMALIZUMAB [Suspect]
     Active Substance: OMALIZUMAB
     Dosage: 375 MG, 2 EVERY 1 WEEK
     Route: 058
  3. OMALIZUMAB [Suspect]
     Active Substance: OMALIZUMAB
     Dosage: 375 MG, 2 EVERY 1 WEEK
     Route: 058
  4. OMALIZUMAB [Suspect]
     Active Substance: OMALIZUMAB
     Dosage: 225 MG, 2 EVERY 1 WEEK
     Route: 058
  5. OMALIZUMAB [Suspect]
     Active Substance: OMALIZUMAB
     Dosage: 375 MG, 2 EVERY 1 WEEK
     Route: 058
  6. OMALIZUMAB [Suspect]
     Active Substance: OMALIZUMAB
     Dosage: 375 MG, 2 EVERY 1 WEEK
     Route: 058
  7. OMALIZUMAB [Suspect]
     Active Substance: OMALIZUMAB
     Dosage: UNK
     Route: 058
  8. OMALIZUMAB [Suspect]
     Active Substance: OMALIZUMAB
     Dosage: 375 MG, 2 EVERY 1 WEEK
     Route: 058
  9. OMALIZUMAB [Suspect]
     Active Substance: OMALIZUMAB
     Dosage: 375 MG, 2 EVERY 1 WEEK
     Route: 058
  10. OMALIZUMAB [Suspect]
     Active Substance: OMALIZUMAB
     Dosage: 375 MG, 2 EVERY 1 WEEK
     Route: 058
  11. OMALIZUMAB [Suspect]
     Active Substance: OMALIZUMAB
     Dosage: UNK
     Route: 065
  12. OMALIZUMAB [Suspect]
     Active Substance: OMALIZUMAB
     Dosage: 375 MG, 2 EVERY 1 WEEK
     Route: 058
  13. OMALIZUMAB [Suspect]
     Active Substance: OMALIZUMAB
     Dosage: 225 MG, 2 EVERY 1 WEEK
     Route: 058
  14. OMALIZUMAB [Suspect]
     Active Substance: OMALIZUMAB
     Dosage: 375 MG, 2 EVERY 1 WEEK
     Route: 058
  15. OMALIZUMAB [Suspect]
     Active Substance: OMALIZUMAB
     Dosage: 375 MG, 2 EVERY 1 WEEK
     Route: 058
  16. OMALIZUMAB [Suspect]
     Active Substance: OMALIZUMAB
     Dosage: 375 MG, 2 EVERY 1 WEEK
     Route: 058
  17. AZITHROMYCIN [Suspect]
     Active Substance: AZITHROMYCIN
     Indication: Product used for unknown indication
     Dosage: UNK
     Route: 065
  18. ADVAIR HFA [Concomitant]
     Active Substance: FLUTICASONE PROPIONATE\SALMETEROL XINAFOATE
     Indication: Product used for unknown indication
     Dosage: 2 DOSAGE FORM, 1 EVERY 1 DAY
  19. ADVAIR HFA [Concomitant]
     Active Substance: FLUTICASONE PROPIONATE\SALMETEROL XINAFOATE
     Indication: Product used for unknown indication
     Dosage: 2 DOSAGE FORM, 1 EVERY 1 DAY
     Route: 065
  20. ALBUTEROL SULFATE [Concomitant]
     Active Substance: ALBUTEROL SULFATE
     Indication: Product used for unknown indication
     Dosage: UNK
  21. ALBUTEROL SULFATE [Concomitant]
     Active Substance: ALBUTEROL SULFATE
     Dosage: 8 DOSAGE FORM, 1 EVERY 1 DAY
  22. FLOVENT [Concomitant]
     Active Substance: FLUTICASONE PROPIONATE
     Indication: Product used for unknown indication
     Dosage: 2 DOSAGE FORM, 1 EVERY 1 DAY
  23. LORAZEPAM [Concomitant]
     Active Substance: LORAZEPAM
     Indication: Product used for unknown indication
     Dosage: 1 DOSAGE FORM
     Route: 065
  24. LORAZEPAM [Concomitant]
     Active Substance: LORAZEPAM
     Indication: Product used for unknown indication
     Dosage: UNK
     Route: 065
  25. MONTELUKAST [Concomitant]
     Active Substance: MONTELUKAST
     Indication: Product used for unknown indication
     Dosage: 1 DOSAGE FORM, 1 EVERY 1 DAY
     Route: 048
  26. MONTELUKAST [Concomitant]
     Active Substance: MONTELUKAST
     Indication: Product used for unknown indication
     Dosage: 1 DOSAGE FORM, 1 EVERY 1 DAY
     Route: 048
  27. PANTOPRAZOLE SODIUM [Concomitant]
     Active Substance: PANTOPRAZOLE SODIUM
     Indication: Product used for unknown indication
     Dosage: 1 DOSAGE FORM, 1 EVERY 1 DAY
     Route: 048
  28. SPIRIVA [Concomitant]
     Active Substance: TIOTROPIUM BROMIDE MONOHYDRATE
     Indication: Product used for unknown indication
     Dosage: 2 DOSAGE FORM, 1 EVERY 1 DAY

REACTIONS (20)
  - Abdominal hernia [Recovered/Resolved]
  - Asthma [Recovered/Resolved]
  - Drug hypersensitivity [Recovered/Resolved]
  - Dyspnoea [Recovered/Resolved]
  - Heart rate increased [Recovered/Resolved]
  - Hernia [Recovered/Resolved]
  - Interstitial lung disease [Recovered/Resolved]
  - Middle insomnia [Recovered/Resolved]
  - Pneumonia [Recovered/Resolved]
  - Postoperative wound infection [Recovered/Resolved]
  - Restrictive pulmonary disease [Recovered/Resolved]
  - Weight decreased [Recovered/Resolved]
  - Injection site pain [Recovered/Resolved]
  - Injection site pruritus [Recovered/Resolved]
  - Pruritus [Recovered/Resolved]
  - Rash [Recovered/Resolved]
  - Drug ineffective [Recovered/Resolved]
  - Incorrect dose administered [Recovered/Resolved]
  - Wrong technique in product usage process [Recovered/Resolved]
  - Intentional product use issue [Unknown]
